FAERS Safety Report 9778632 (Version 1)
Quarter: 2013Q4

REPORT INFORMATION
  Report Type: Spontaneous
  Country: US (occurrence: US)
  Receive Date: 20131223
  Receipt Date: 20131223
  Transmission Date: 20140711
  Serious: Yes (Hospitalization)
  Sender: FDA-Public Use
  Company Number: US-CUBIST PHARMACEUTICAL, INC.-2013CBST001326

PATIENT
  Sex: 0

DRUGS (4)
  1. CUBICIN [Suspect]
     Indication: BREAST ABSCESS
     Dosage: UNK UNK, UNK
     Route: 042
  2. CUBICIN [Suspect]
     Indication: STAPHYLOCOCCAL INFECTION
     Dosage: UNK, UNK
     Route: 042
  3. CUBICIN [Suspect]
     Indication: CORYNEBACTERIUM INFECTION
  4. CUBICIN [Suspect]
     Indication: OFF LABEL USE

REACTIONS (1)
  - Breast abscess [Recovered/Resolved]
